FAERS Safety Report 18124836 (Version 6)
Quarter: 2021Q1

REPORT INFORMATION
  Report Type: Report from Study
  Country: US (occurrence: US)
  Receive Date: 20200807
  Receipt Date: 20210311
  Transmission Date: 20210419
  Serious: Yes (Hospitalization)
  Sender: FDA-Public Use
  Company Number: US-JNJFOC-20200801556

PATIENT
  Age: 11 Year
  Sex: Female
  Weight: 27.1 kg

DRUGS (11)
  1. AZATHIOPRINE. [Concomitant]
     Active Substance: AZATHIOPRINE
     Route: 065
  2. HYDROXYUREA. [Concomitant]
     Active Substance: HYDROXYUREA
  3. INFLIXIMAB, RECOMBINANT [Suspect]
     Active Substance: INFLIXIMAB
     Indication: INFLAMMATORY BOWEL DISEASE
     Route: 042
     Dates: start: 20131127, end: 20191008
  4. ENTYVIO [Concomitant]
     Active Substance: VEDOLIZUMAB
     Route: 065
     Dates: start: 20191120
  5. 5?ASA [Concomitant]
     Active Substance: MESALAMINE
     Route: 048
  6. STELARA [Concomitant]
     Active Substance: USTEKINUMAB
  7. FOLIC ACID. [Concomitant]
     Active Substance: FOLIC ACID
  8. 5?ASA [Concomitant]
     Active Substance: MESALAMINE
     Route: 054
  9. 5?ASA [Concomitant]
     Active Substance: MESALAMINE
     Route: 054
  10. CALCIUM CARBONATE. [Concomitant]
     Active Substance: CALCIUM CARBONATE
  11. ALLOPURINOL. [Concomitant]
     Active Substance: ALLOPURINOL

REACTIONS (5)
  - Acute chest syndrome [Recovered/Resolved]
  - Colitis ulcerative [Recovered/Resolved]
  - Sickle cell anaemia with crisis [Recovered/Resolved]
  - Sickle cell anaemia with crisis [Recovered/Resolved]
  - Sickle cell anaemia with crisis [Recovered/Resolved]

NARRATIVE: CASE EVENT DATE: 20200415
